FAERS Safety Report 9148894 (Version 1)
Quarter: 2013Q1

REPORT INFORMATION
  Report Type: Spontaneous
  Country: DE (occurrence: DE)
  Receive Date: 20130308
  Receipt Date: 20130308
  Transmission Date: 20140127
  Serious: Yes (Other)
  Sender: FDA-Public Use
  Company Number: DE-MYLANLABS-2013S1005084

PATIENT
  Age: 38 Year
  Sex: Female
  Weight: 70 kg

DRUGS (2)
  1. ATENOLOL [Suspect]
     Indication: TACHYCARDIA
     Route: 048
     Dates: start: 20110812, end: 20120515
  2. FOLIC ACID [Concomitant]
     Indication: PROPHYLAXIS OF NEURAL TUBE DEFECT
     Route: 048
     Dates: start: 20110812, end: 20120515

REACTIONS (2)
  - Exposure during pregnancy [Unknown]
  - Premature rupture of membranes [Unknown]
